FAERS Safety Report 25839069 (Version 1)
Quarter: 2025Q3

REPORT INFORMATION
  Report Type: Spontaneous
  Country: EU (occurrence: EU)
  Receive Date: 20250924
  Receipt Date: 20250924
  Transmission Date: 20251020
  Serious: Yes (Hospitalization)
  Sender: ACCORD
  Company Number: None

PATIENT
  Age: 50 Year
  Sex: Female

DRUGS (1)
  1. CARBOPLATIN [Suspect]
     Active Substance: CARBOPLATIN
     Indication: Product used for unknown indication

REACTIONS (6)
  - Burning sensation [Recovering/Resolving]
  - Dysaesthesia pharynx [Recovering/Resolving]
  - Blood pressure normal [Recovering/Resolving]
  - Tachycardia [Recovering/Resolving]
  - Rash maculo-papular [Recovering/Resolving]
  - Infusion related hypersensitivity reaction [Recovering/Resolving]

NARRATIVE: CASE EVENT DATE: 20211119
